FAERS Safety Report 18024386 (Version 3)
Quarter: 2021Q1

REPORT INFORMATION
  Report Type: Report from Study
  Country: None (occurrence: US)
  Receive Date: 20200714
  Receipt Date: 20210216
  Transmission Date: 20210419
  Serious: Yes (Hospitalization, Other)
  Sender: FDA-Public Use
  Company Number: US-ABBVIE-20K-163-3438341-00

PATIENT
  Age: 0 Day
  Sex: Female
  Weight: 123.03 kg

DRUGS (3)
  1. HUMIRA [Suspect]
     Active Substance: ADALIMUMAB
     Indication: HIDRADENITIS
     Route: 058
  2. HUMIRA [Suspect]
     Active Substance: ADALIMUMAB
     Indication: PSORIATIC ARTHROPATHY
     Route: 058
     Dates: start: 2019, end: 202006
  3. HUMIRA [Suspect]
     Active Substance: ADALIMUMAB
     Route: 058
     Dates: start: 202011

REACTIONS (6)
  - Stress [Recovering/Resolving]
  - Scar [Unknown]
  - Scoliosis [Recovering/Resolving]
  - Condition aggravated [Recovering/Resolving]
  - Psoriatic arthropathy [Unknown]
  - Nerve root injury [Recovering/Resolving]

NARRATIVE: CASE EVENT DATE: 19770415
